FAERS Safety Report 5228684-9 (Version None)
Quarter: 2007Q1

REPORT INFORMATION
  Report Type: 
  Country: None (occurrence: None)
  Receive Date: 20070205
  Receipt Date: 20070126
  Transmission Date: 20070707
  Serious: Yes (Life-Threatening, Hospitalization, Other)
  Sender: FDA-Public Use
  Company Number: PL-GLAXOSMITHKLINE-B0456879A

PATIENT
  Sex: Female
  Weight: 55 kg

DRUGS (1)
  1. AUGMENTIN '125' [Suspect]
     Dosage: 1.2G THREE TIMES PER DAY
     Route: 042
     Dates: start: 20070122, end: 20070122

REACTIONS (8)
  - ANAPHYLACTIC SHOCK [None]
  - BLOOD PRESSURE DECREASED [None]
  - COAGULOPATHY [None]
  - DRUG EXPOSURE DURING PREGNANCY [None]
  - DYSPNOEA [None]
  - HAEMORRHAGE [None]
  - HEART RATE INCREASED [None]
  - HYSTERECTOMY [None]
